FAERS Safety Report 8502640 (Version 4)
Quarter: 2013Q1

REPORT INFORMATION
  Report Type: Spontaneous
  Country: US (occurrence: US)
  Receive Date: 20120410
  Receipt Date: 20130325
  Transmission Date: 20140127
  Serious: Yes (Other)
  Sender: FDA-Public Use
  Company Number: US-PFIZER INC-2012087181

PATIENT
  Age: 67 Year
  Sex: Female
  Weight: 100 kg

DRUGS (4)
  1. CADUET [Suspect]
     Indication: BLOOD CHOLESTEROL ABNORMAL
     Dosage: 10 MG/ 20 MG, 1X/DAY
  2. CADUET [Suspect]
     Indication: HYPERTENSION
  3. METFORMIN [Concomitant]
     Indication: TYPE 2 DIABETES MELLITUS
     Dosage: UNK
     Dates: start: 20110817
  4. HYDROCHLOROTHIAZIDE [Concomitant]
     Indication: JOINT SWELLING
     Dosage: UNK, AS NEEDED

REACTIONS (5)
  - Diabetes mellitus [Unknown]
  - Seasonal allergy [Unknown]
  - Sneezing [Unknown]
  - Intentional drug misuse [Unknown]
  - Accidental exposure to product [Unknown]
